FAERS Safety Report 5473357-0 (Version None)
Quarter: 2007Q4

REPORT INFORMATION
  Report Type: 
  Country: None (occurrence: None)
  Receive Date: 20071001
  Receipt Date: 20070927
  Transmission Date: 20080405
  Serious: Yes (Disabling)
  Sender: FDA-Public Use
  Company Number: JP-BRISTOL-MYERS SQUIBB COMPANY-13923396

PATIENT
  Age: 56 Year
  Sex: Male

DRUGS (4)
  1. BRIPLATIN [Suspect]
     Indication: PLEURAL MESOTHELIOMA MALIGNANT
     Dosage: DOSE WAS REDUCED TO 60 MG/M2 FOR 3RD COURSE ON 08-MAY-07.
     Route: 041
     Dates: start: 20070313, end: 20070410
  2. ALIMTA [Suspect]
     Indication: PLEURAL MESOTHELIOMA MALIGNANT
     Dosage: DOSE WAS REDUCED TO 400 MG/M2 FOR 3RD COURSE ON 08-MAY-07.
     Route: 041
     Dates: start: 20070313, end: 20070410
  3. FOLIAMIN [Concomitant]
     Route: 048
     Dates: start: 20070227, end: 20070530
  4. METHYCOBAL [Concomitant]
     Route: 030
     Dates: start: 20070227

REACTIONS (1)
  - BLOOD CREATININE INCREASED [None]
